FAERS Safety Report 7467191-X (Version None)
Quarter: 2011Q2

REPORT INFORMATION
  Report Type: 
  Country: None (occurrence: None)
  Receive Date: 20110509
  Receipt Date: 20101112
  Transmission Date: 20111010
  Serious: Yes (Hospitalization)
  Sender: FDA-Public Use
  Company Number: US-ALEXION-A201001464

PATIENT
  Sex: Female

DRUGS (7)
  1. ZOLOFT [Concomitant]
     Indication: BIPOLAR DISORDER
     Dosage: UNK
  2. SOLIRIS [Suspect]
     Dosage: 900 MG, Q2W
     Route: 042
     Dates: start: 20100601
  3. SOLIRIS [Suspect]
     Indication: PAROXYSMAL NOCTURNAL HAEMOGLOBINURIA
     Dosage: 600 MG, QW
     Route: 042
     Dates: start: 20100501, end: 20100601
  4. COUMADIN [Concomitant]
     Indication: ANTICOAGULANT THERAPY
     Dosage: UNK
  5. MULTI-VITAMINS [Concomitant]
     Dosage: UNK
  6. VITAMIN B12                        /00056201/ [Concomitant]
     Dosage: UNK
  7. LITHIUM [Concomitant]
     Indication: BIPOLAR DISORDER
     Dosage: UNK

REACTIONS (7)
  - INTERNATIONAL NORMALISED RATIO INCREASED [None]
  - HEADACHE [None]
  - HAEMATOCRIT DECREASED [None]
  - NAUSEA [None]
  - PAIN [None]
  - VOMITING [None]
  - PYREXIA [None]
